FAERS Safety Report 20524285 (Version 1)
Quarter: 2022Q1

REPORT INFORMATION
  Report Type: Other
  Country: CA (occurrence: None)
  Receive Date: 20220228
  Receipt Date: 20220228
  Transmission Date: 20220424
  Serious: Yes (Other)
  Sender: FDA-Public Use
  Company Number: CA-ROCHE-3002754

PATIENT
  Sex: Female

DRUGS (7)
  1. ACTEMRA [Suspect]
     Active Substance: TOCILIZUMAB
     Indication: Rheumatoid arthritis
     Dosage: DRUG DOSE FIRST ADMINISTERED IS 200 MG MILLIGRAM(S)
     Route: 042
     Dates: start: 20210907, end: 20211213
  2. ACTEMRA [Suspect]
     Active Substance: TOCILIZUMAB
     Indication: Rheumatoid arthritis
     Dosage: DRUG DOSE FIRST ADMINISTERED IS 162 MG MILLIGRAM(S)
     Route: 058
     Dates: start: 20220113
  3. CELEBREX [Concomitant]
     Active Substance: CELECOXIB
  4. PANTOPRAZOLE [Concomitant]
     Active Substance: PANTOPRAZOLE
  5. PREDNISONE [Concomitant]
     Active Substance: PREDNISONE
  6. RISEDRONATE SODIUM [Concomitant]
     Active Substance: RISEDRONATE SODIUM
  7. TELMISARTAN [Concomitant]
     Active Substance: TELMISARTAN

REACTIONS (4)
  - Immunodeficiency [Unknown]
  - Cyst [Unknown]
  - Chest pain [Unknown]
  - Malaise [Unknown]
